FAERS Safety Report 5405088-7 (Version None)
Quarter: 2007Q3

REPORT INFORMATION
  Report Type: 
  Country: None (occurrence: None)
  Receive Date: 20070803
  Receipt Date: 20070723
  Transmission Date: 20080115
  Serious: Yes (Other)
  Sender: FDA-Public Use
  Company Number: US-ROCHE-502303

PATIENT
  Age: 65 Year
  Sex: Male
  Weight: 72.1 kg

DRUGS (10)
  1. CELLCEPT [Suspect]
     Dosage: STRENGTH REPORTED AS 500 MG
     Route: 048
     Dates: start: 20020503, end: 20070604
  2. CELLCEPT [Suspect]
     Dosage: STRENGTH REPORTED AS 250 MG
     Route: 048
     Dates: start: 20070604, end: 20070703
  3. PROGRAF [Concomitant]
  4. MAGNESIUM SULFATE [Concomitant]
  5. NEXIUM [Concomitant]
  6. ZANTAC 150 [Concomitant]
  7. LIPITOR [Concomitant]
  8. ZETIA [Concomitant]
  9. BACTRIM [Concomitant]
  10. SYNTHROID [Concomitant]

REACTIONS (5)
  - BODY MASS INDEX DECREASED [None]
  - CLOSTRIDIAL INFECTION [None]
  - DIARRHOEA [None]
  - STEATORRHOEA [None]
  - WEIGHT DECREASED [None]
